FAERS Safety Report 16159144 (Version 1)
Quarter: 2019Q2

REPORT INFORMATION
  Report Type: Spontaneous
  Country: US (occurrence: US)
  Receive Date: 20190404
  Receipt Date: 20190404
  Transmission Date: 20190711
  Serious: Yes (Other)
  Sender: FDA-Public Use
  Company Number: US-VALIDUS PHARMACEUTICALS LLC-US-2018VAL000784

PATIENT
  Sex: Female

DRUGS (2)
  1. LOPRESSOR [Suspect]
     Active Substance: METOPROLOL TARTRATE
     Indication: PRODUCT USED FOR UNKNOWN INDICATION
     Dosage: 25 MG, BID
     Dates: start: 20140805
  2. LOPRESSOR [Suspect]
     Active Substance: METOPROLOL TARTRATE
     Dosage: 25 MG, QD
     Dates: start: 20140815, end: 20140917

REACTIONS (1)
  - Heart rate decreased [Unknown]
